FAERS Safety Report 14045026 (Version 1)
Quarter: 2017Q4

REPORT INFORMATION
  Report Type: Spontaneous
  Country: IL (occurrence: IL)
  Receive Date: 20171005
  Receipt Date: 20171005
  Transmission Date: 20180321
  Serious: Yes (Other)
  Sender: FDA-Public Use
  Company Number: IL-BAYER-2017-185320

PATIENT
  Age: 77 Year
  Sex: Male

DRUGS (1)
  1. NEXAVAR [Suspect]
     Active Substance: SORAFENIB
     Indication: HEPATOCELLULAR CARCINOMA

REACTIONS (3)
  - Jaundice hepatocellular [None]
  - Blood bilirubin increased [Not Recovered/Not Resolved]
  - Jaundice cholestatic [None]

NARRATIVE: CASE EVENT DATE: 2017
